FAERS Safety Report 15605509 (Version 1)
Quarter: 2018Q4

REPORT INFORMATION
  Report Type: Other
  Country: ES (occurrence: ES)
  Receive Date: 20181112
  Receipt Date: 20181112
  Transmission Date: 20190205
  Serious: Yes (Other)
  Sender: FDA-Public Use
  Company Number: ES-APOTEX-2018AP024314

PATIENT
  Age: 78 Year
  Sex: Female

DRUGS (1)
  1. IBANDRONATE [Suspect]
     Active Substance: IBANDRONATE SODIUM
     Indication: OSTEOPOROSIS
     Dosage: UNK
     Route: 048

REACTIONS (4)
  - Pain [Unknown]
  - Exposed bone in jaw [Unknown]
  - Purulence [Unknown]
  - Osteonecrosis of jaw [Unknown]
